FAERS Safety Report 15150036 (Version 1)
Quarter: 2018Q3

REPORT INFORMATION
  Report Type: Spontaneous
  Country: US (occurrence: US)
  Receive Date: 20180619
  Receipt Date: 20180619
  Transmission Date: 20181010
  Serious: Yes (Life-Threatening)
  Sender: FDA-Public Use
  Company Number: None

PATIENT
  Age: 63 Year
  Sex: Male
  Weight: 94.6 kg

DRUGS (4)
  1. ASPIRIN. [Concomitant]
     Active Substance: ASPIRIN
  2. SILDENAFIL. [Concomitant]
     Active Substance: SILDENAFIL
  3. SULINDAC 150MG [Suspect]
     Active Substance: SULINDAC
     Indication: ARTHRALGIA
     Route: 048
     Dates: start: 20180328, end: 20180403
  4. VALSARTAN. [Concomitant]
     Active Substance: VALSARTAN

REACTIONS (3)
  - Dyspnoea [None]
  - Asthenia [None]
  - Eosinophilic pneumonia [None]

NARRATIVE: CASE EVENT DATE: 20180403
